FAERS Safety Report 12607955 (Version 2)
Quarter: 2016Q3

REPORT INFORMATION
  Report Type: Spontaneous
  Country: FR (occurrence: FR)
  Receive Date: 20160729
  Receipt Date: 20160801
  Transmission Date: 20161109
  Serious: Yes (Other)
  Sender: FDA-Public Use
  Company Number: FR-MYLANLABS-2014M1003891

PATIENT

DRUGS (1)
  1. OXYBUTYNIN MYLAN [Suspect]
     Active Substance: OXYBUTYNIN
     Indication: URINARY ANASTOMOTIC LEAK
     Dosage: UNK
     Dates: start: 20130105

REACTIONS (2)
  - Disturbance in attention [Recovered/Resolved]
  - Staring [Recovered/Resolved]
